FAERS Safety Report 4428621-0 (Version None)
Quarter: 2004Q3

REPORT INFORMATION
  Report Type: 
  Country: None (occurrence: None)
  Receive Date: 20040818
  Receipt Date: 20030626
  Transmission Date: 20050211
  Serious: No
  Sender: FDA-Public Use
  Company Number: US-BRISTOL-MYERS SQUIBB COMPANY-12311387

PATIENT
  Age: 45 Year
  Sex: Male
  Weight: 188 kg

DRUGS (5)
  1. TEQUIN [Suspect]
     Indication: BRONCHITIS
     Dosage: THIS WAS A 10 DAY COURSE OF GATIFLOXACIN
     Route: 048
     Dates: start: 20030617
  2. TEQUIN [Suspect]
     Indication: UPPER RESPIRATORY TRACT INFECTION
     Dosage: THIS WAS A 10 DAY COURSE OF GATIFLOXACIN
     Route: 048
     Dates: start: 20030617
  3. PREVACID [Concomitant]
  4. HYDROCODONE [Concomitant]
  5. AVANDAMET [Concomitant]
     Dates: start: 20021201

REACTIONS (1)
  - DRUG INEFFECTIVE [None]
